FAERS Safety Report 8542107-3 (Version None)
Quarter: 2012Q3

REPORT INFORMATION
  Report Type: 
  Country: None (occurrence: None)
  Receive Date: 20120726
  Receipt Date: 20111021
  Transmission Date: 20120928
  Serious: No
  Sender: FDA-Public Use
  Company Number: US-ASTRAZENECA-2011SE63439

PATIENT
  Age: 60 Year
  Sex: Female
  Weight: 108.9 kg

DRUGS (16)
  1. SEROQUEL XR [Suspect]
     Indication: DEPRESSION
     Dosage: 400-450 MG DAILY
     Route: 048
  2. SEROQUEL XR [Suspect]
     Indication: MOOD SWINGS
     Dosage: 400-450 MG DAILY
     Route: 048
  3. COZAAR [Concomitant]
     Indication: HYPERTENSION
  4. FUROSEMIDE [Concomitant]
     Indication: HYPERTENSION
  5. SEROQUEL XR [Suspect]
     Route: 048
  6. SEROQUEL XR [Suspect]
     Route: 048
  7. SEROQUEL XR [Suspect]
     Indication: SLEEP DISORDER
     Dosage: 400-450 MG DAILY
     Route: 048
  8. SEROQUEL XR [Suspect]
     Indication: ANXIETY
     Dosage: 400-450 MG DAILY
     Route: 048
  9. CYMBALTA [Concomitant]
  10. METFORMIN HYDROCHLORIDE [Concomitant]
     Indication: DIABETES MELLITUS
  11. BYSTOLIC [Concomitant]
     Indication: HYPERTENSION
  12. EFFEXOR [Concomitant]
  13. LIPIZIDE [Concomitant]
     Indication: DIABETES MELLITUS
  14. SEROQUEL XR [Suspect]
     Route: 048
  15. SEROQUEL XR [Suspect]
     Route: 048
  16. BUSCAR [Concomitant]

REACTIONS (4)
  - OFF LABEL USE [None]
  - DRUG DOSE OMISSION [None]
  - INSOMNIA [None]
  - ABDOMINAL DISCOMFORT [None]
